FAERS Safety Report 22076342 (Version 1)
Quarter: 2023Q1

REPORT INFORMATION
  Report Type: Spontaneous
  Country: EG (occurrence: EG)
  Receive Date: 20230309
  Receipt Date: 20230309
  Transmission Date: 20230418
  Serious: Yes (Hospitalization, Other)
  Sender: FDA-Public Use
  Company Number: EG-NOVOPROD-1005505

PATIENT
  Age: 72 Year
  Sex: Female

DRUGS (12)
  1. NOVORAPID [Suspect]
     Active Substance: INSULIN ASPART
     Dosage: 38 IU, QD (14 U BEFORE BREAKFAST / 14 U BEFORE LUNCH AND 10 U BEFORE DINNER)
     Route: 058
  2. NOVORAPID [Suspect]
     Active Substance: INSULIN ASPART
     Dosage: 2U (CORRECTION DOSE)
     Route: 058
  3. NOVORAPID [Suspect]
     Active Substance: INSULIN ASPART
     Indication: Type 2 diabetes mellitus
     Dosage: 34 IU, QD (12 IU BREAKFAST, 12 IU LUNCH AND 10 IU DINNER)
     Route: 058
  4. NOVORAPID [Suspect]
     Active Substance: INSULIN ASPART
     Dosage: UNK (RESTARTED)
     Route: 058
  5. LANTUS SOLOSTAR [Concomitant]
     Active Substance: INSULIN GLARGINE
     Dosage: 20 TO 25 IU DAILY
  6. LANTUS SOLOSTAR [Concomitant]
     Active Substance: INSULIN GLARGINE
     Indication: Type 2 diabetes mellitus
     Dosage: 18 IU, QD (AT 01 OR 02 AM)
  7. LANTUS SOLOSTAR [Concomitant]
     Active Substance: INSULIN GLARGINE
     Dosage: 16 IU, QD
  8. ERASTAPEX [Concomitant]
     Indication: Hypertension
     Dosage: 1 TABLET, STARTED 4 YEARS AGO
  9. BISOPROLOL FUMARATE [Concomitant]
     Active Substance: BISOPROLOL FUMARATE
     Indication: Hypertension
     Dosage: 100 MG, QD (1 TAB)
  10. ANGIOFOX [Concomitant]
     Indication: Coronary artery occlusion
     Dosage: 1 TABLET, STARTED 4 YEARS AGO
  11. IVABRADINE [Concomitant]
     Active Substance: IVABRADINE
     Indication: Coronary artery occlusion
     Dosage: 5 MG, QD (2 TAB), 4 YEARS AGO
  12. DINITRA [Concomitant]
     Indication: Chest pain
     Dosage: UNK, USED AS PER NEED
     Route: 060

REACTIONS (8)
  - Rib fracture [Not Recovered/Not Resolved]
  - Hyperglycaemia [Unknown]
  - Hypoglycaemic coma [Unknown]
  - Hypoglycaemia [Not Recovered/Not Resolved]
  - Visual impairment [Unknown]
  - Influenza [Recovered/Resolved]
  - Disturbance in attention [Recovered/Resolved]
  - Hyperglycaemia [Not Recovered/Not Resolved]

NARRATIVE: CASE EVENT DATE: 20230201
